FAERS Safety Report 5510403-X (Version None)
Quarter: 2007Q4

REPORT INFORMATION
  Report Type: 
  Country: None (occurrence: None)
  Receive Date: 20071108
  Receipt Date: 20071030
  Transmission Date: 20080405
  Serious: Yes (Hospitalization)
  Sender: FDA-Public Use
  Company Number: GB-WYE-H00974007

PATIENT
  Age: 33 Year
  Sex: Female

DRUGS (3)
  1. IBUPROFEN [Suspect]
     Dosage: UNKNOWN
     Route: 065
  2. ACETAMINOPHEN [Suspect]
     Dosage: UNKNOWN
     Route: 065
  3. AMITRIPTYLINE HYDROCHLORIDE [Suspect]
     Indication: DEPRESSION
     Dosage: UNKNOWN
     Route: 048
     Dates: end: 20020917

REACTIONS (10)
  - ACUTE RESPIRATORY DISTRESS SYNDROME [None]
  - CARDIO-RESPIRATORY ARREST [None]
  - ELECTROMECHANICAL DISSOCIATION [None]
  - GRAND MAL CONVULSION [None]
  - HAEMOPHILUS INFECTION [None]
  - LOSS OF CONSCIOUSNESS [None]
  - MULTIPLE DRUG OVERDOSE [None]
  - PNEUMOTHORAX [None]
  - STREPTOCOCCAL INFECTION [None]
  - TACHYCARDIA [None]
